FAERS Safety Report 7875845-6 (Version None)
Quarter: 2011Q4

REPORT INFORMATION
  Report Type: 
  Country: None (occurrence: None)
  Receive Date: 20111031
  Receipt Date: 20111025
  Transmission Date: 20120403
  Serious: Yes (Hospitalization, Disabling)
  Sender: FDA-Public Use
  Company Number: PHHY2011US94770

PATIENT
  Sex: Male

DRUGS (4)
  1. PROLEUKIN [Suspect]
     Indication: MALIGNANT MELANOMA
     Dosage: 59.16 MIU, Q8H
     Route: 042
     Dates: start: 20111021, end: 20111025
  2. LEVAQUIN [Concomitant]
     Dosage: 500 MG, DAILY
  3. PEPCID [Concomitant]
     Dosage: 20 MG, BID
  4. DILTIAZEM HCL [Concomitant]
     Dosage: 20 MG, DAILY

REACTIONS (3)
  - ATRIAL FIBRILLATION [None]
  - PLATELET COUNT DECREASED [None]
  - BLOOD PRESSURE SYSTOLIC DECREASED [None]
